FAERS Safety Report 8400071-1 (Version None)
Quarter: 2012Q2

REPORT INFORMATION
  Report Type: 
  Country: None (occurrence: None)
  Receive Date: 20120531
  Receipt Date: 20120522
  Transmission Date: 20120825
  Serious: No
  Sender: FDA-Public Use
  Company Number: US-B.I. PHARMACEUTICALS,INC./RIDGEFIELD-2012-BP-11384BP

PATIENT
  Age: 76 Year
  Sex: Female

DRUGS (2)
  1. PROPAFENONE HCL [Concomitant]
     Dates: start: 20111201
  2. PRADAXA [Suspect]
     Dosage: 300 MG
     Route: 048
     Dates: start: 20111229

REACTIONS (3)
  - GAIT DISTURBANCE [None]
  - ASTHENIA [None]
  - MUSCULAR WEAKNESS [None]
